FAERS Safety Report 5939483-4 (Version None)
Quarter: 2008Q4

REPORT INFORMATION
  Report Type: 
  Country: None (occurrence: None)
  Receive Date: 20081103
  Receipt Date: 20081027
  Transmission Date: 20090506
  Serious: Yes (Other)
  Sender: FDA-Public Use
  Company Number: US-ALLERGAN-0812601US

PATIENT
  Sex: Female
  Weight: 57.143 kg

DRUGS (3)
  1. BOTOX COSMETIC [Suspect]
     Indication: SKIN WRINKLING
     Dosage: UNK, UNK
     Route: 030
     Dates: start: 20080228, end: 20080228
  2. BOTOX COSMETIC [Suspect]
     Dosage: UNK, SINGLE
     Route: 030
     Dates: start: 20071127, end: 20071127
  3. BOTOX COSMETIC [Suspect]
     Dosage: 20 UNITS, SINGLE
     Route: 030
     Dates: start: 20070703, end: 20070703

REACTIONS (2)
  - MENINGIOMA BENIGN [None]
  - WRONG TECHNIQUE IN DRUG USAGE PROCESS [None]
